FAERS Safety Report 17451917 (Version 4)
Quarter: 2020Q1

REPORT INFORMATION
  Report Type: Report from Study
  Country: US (occurrence: US)
  Receive Date: 20200224
  Receipt Date: 20200310
  Transmission Date: 20200409
  Serious: Yes (Hospitalization, Other)
  Sender: FDA-Public Use
  Company Number: US-GILEAD-2020-0450680

PATIENT
  Age: 51 Year
  Sex: Male

DRUGS (5)
  1. AMBRISENTAN [Suspect]
     Active Substance: AMBRISENTAN
     Indication: PULMONARY HYPERTENSION
     Dosage: 10 MG, QD
     Route: 048
     Dates: start: 20200106
  2. DILTIAZEM. [Concomitant]
     Active Substance: DILTIAZEM
  3. WARFARIN [Concomitant]
     Active Substance: WARFARIN
  4. TADALAFIL. [Concomitant]
     Active Substance: TADALAFIL
  5. REMODULIN [Concomitant]
     Active Substance: TREPROSTINIL
     Dosage: 138 NG/KG/MIN
     Route: 065

REACTIONS (3)
  - Dyspnoea [Recovered/Resolved]
  - Pulmonary hypertension [Recovered/Resolved]
  - Hypotension [Recovered/Resolved]

NARRATIVE: CASE EVENT DATE: 20200201
